FAERS Safety Report 6633560-0 (Version None)
Quarter: 2010Q1

REPORT INFORMATION
  Report Type: 
  Country: None (occurrence: None)
  Receive Date: 20100312
  Receipt Date: 20100210
  Transmission Date: 20100710
  Serious: No
  Sender: FDA-Public Use
  Company Number: US-ABBOTT-10P-163-0625436-00

PATIENT
  Weight: 134.84 kg

DRUGS (23)
  1. ERYTHROMYCIN [Suspect]
     Indication: DRUG USE FOR UNKNOWN INDICATION
  2. VIVAGLOBIN [Concomitant]
     Indication: SELECTIVE IGG SUBCLASS DEFICIENCY
     Route: 058
     Dates: start: 20070329, end: 20091019
  3. VIVAGLOBIN [Concomitant]
     Route: 058
     Dates: start: 20091019
  4. CALCITRIOL [Concomitant]
     Indication: DRUG USE FOR UNKNOWN INDICATION
  5. CARAFATE [Concomitant]
     Indication: DRUG USE FOR UNKNOWN INDICATION
  6. COZAAR [Concomitant]
     Indication: DRUG USE FOR UNKNOWN INDICATION
  7. EPIPEN [Concomitant]
     Indication: DRUG USE FOR UNKNOWN INDICATION
     Dosage: 0.3MG/0.3 ML AS DIRECTED FOR SEVERE ALLERGIC REACTION
     Dates: start: 20070313
  8. LACTOBACILLUS ACIDOPHILUS [Concomitant]
     Indication: DRUG USE FOR UNKNOWN INDICATION
  9. GLUCOPHAGE [Concomitant]
     Indication: DRUG USE FOR UNKNOWN INDICATION
  10. LANTUS [Concomitant]
     Indication: DRUG USE FOR UNKNOWN INDICATION
     Dosage: 8 UNITS IN AM AND 10-11 UNITS IN PM
  11. LASIX [Concomitant]
     Indication: DRUG USE FOR UNKNOWN INDICATION
  12. MAXAIR [Concomitant]
     Indication: ASTHMA
     Dosage: 2 PUFFS EVERY 4 HOURS AS NEEDED
     Route: 055
     Dates: start: 20091013
  13. POTASSIUM CHLORIDE [Concomitant]
     Indication: DRUG USE FOR UNKNOWN INDICATION
  14. PREVACID [Concomitant]
     Indication: DRUG USE FOR UNKNOWN INDICATION
  15. SINGULAIR [Concomitant]
     Indication: DRUG USE FOR UNKNOWN INDICATION
  16. SYNTHROID [Concomitant]
     Indication: DRUG USE FOR UNKNOWN INDICATION
  17. VALTREX [Concomitant]
     Indication: DRUG USE FOR UNKNOWN INDICATION
  18. ACTOS [Concomitant]
     Indication: DRUG USE FOR UNKNOWN INDICATION
  19. ALLEGRA [Concomitant]
     Indication: DRUG USE FOR UNKNOWN INDICATION
  20. BION TEARS [Concomitant]
     Indication: DRUG USE FOR UNKNOWN INDICATION
     Dosage: 0.1-0.3% AS NEEDED
  21. AUGMENTIN [Concomitant]
     Indication: DRUG USE FOR UNKNOWN INDICATION
     Dosage: 875-125 MG TABLET TWICE PER DAY FOR 10 DAYS
     Dates: start: 20091023
  22. BYETTA [Concomitant]
     Indication: DRUG USE FOR UNKNOWN INDICATION
     Dates: start: 20070809
  23. METANX [Concomitant]
     Indication: DRUG USE FOR UNKNOWN INDICATION
     Dosage: MEDICAL FOOD

REACTIONS (1)
  - DYSPNOEA [None]
